FAERS Safety Report 9503127 (Version 1)
Quarter: 2013Q3

REPORT INFORMATION
  Report Type: Spontaneous
  Country: US (occurrence: US)
  Receive Date: 20130906
  Receipt Date: 20130906
  Transmission Date: 20140515
  Serious: Yes (Other)
  Sender: FDA-Public Use
  Company Number: US-ELI_LILLY_AND_COMPANY-US201308009431

PATIENT
  Sex: Female

DRUGS (4)
  1. CYMBALTA [Suspect]
     Indication: DEPRESSION
     Dosage: 90 MG, QD
     Route: 065
     Dates: start: 2011
  2. CYMBALTA [Suspect]
     Indication: FIBROMYALGIA
  3. AMBIEN [Concomitant]
     Indication: BLOOD PRESSURE
     Dosage: UNK, UNKNOWN
     Route: 065
  4. HYDROCODONE [Concomitant]
     Dosage: 1 DF, QD
     Route: 065

REACTIONS (4)
  - Syncope [Unknown]
  - Chest pain [Unknown]
  - Dizziness [Unknown]
  - Drug withdrawal syndrome [Unknown]
